FAERS Safety Report 16464268 (Version 3)
Quarter: 2019Q3

REPORT INFORMATION
  Report Type: Spontaneous
  Country: US (occurrence: US)
  Receive Date: 20190621
  Receipt Date: 20190920
  Transmission Date: 20191004
  Serious: Yes (Death, Other)
  Sender: FDA-Public Use
  Company Number: US-ASTRAZENECA-2019SE11441

PATIENT
  Age: 64 Year
  Sex: Male

DRUGS (14)
  1. LIPITOR [Concomitant]
     Active Substance: ATORVASTATIN CALCIUM
     Dosage: 20 MG TABLET
     Dates: start: 20111105
  2. NEXIUM [Suspect]
     Active Substance: ESOMEPRAZOLE MAGNESIUM
     Route: 048
     Dates: start: 20101129
  3. DOXAZOSIN [Concomitant]
     Active Substance: DOXAZOSIN MESYLATE
     Dosage: 4 MG TABLET
     Dates: start: 20101130
  4. NEXIUM [Suspect]
     Active Substance: ESOMEPRAZOLE MAGNESIUM
     Route: 048
     Dates: start: 2009, end: 2011
  5. NEXIUM [Suspect]
     Active Substance: ESOMEPRAZOLE MAGNESIUM
     Route: 048
  6. NOVOLIN [Concomitant]
     Active Substance: INSULIN HUMAN
     Dosage: 100 U/ML
     Dates: start: 20100120
  7. ECONAZOLE. [Concomitant]
     Active Substance: ECONAZOLE NITRATE
     Dosage: 1% CREAM 85 GM
     Dates: start: 20100720
  8. ACETAMINOPHEN. [Concomitant]
     Active Substance: ACETAMINOPHEN
     Dosage: TABLET
     Dates: start: 20100921
  9. SILDEC [Concomitant]
     Active Substance: BROMPHENIRAMINE MALEATE\PSEUDOEPHEDRINE HYDROCHLORIDE
     Dosage: SYRUP
     Dates: start: 20100510
  10. RHINOCORT [Concomitant]
     Active Substance: BUDESONIDE
     Dosage: NASAL SPRAY
     Dates: start: 20100421
  11. LAMOTRIGINE. [Concomitant]
     Active Substance: LAMOTRIGINE
     Dosage: 200MG TABLET
     Dates: start: 20110209
  12. LISINOPRIL. [Concomitant]
     Active Substance: LISINOPRIL
     Dosage: 40MG TABLET
     Dates: start: 20101001
  13. ECONAZOLE. [Concomitant]
     Active Substance: ECONAZOLE NITRATE
     Dosage: 1% CREAM 85 GM
     Dates: start: 20100720
  14. HYDROCHLOROTHIAZIDE. [Concomitant]
     Active Substance: HYDROCHLOROTHIAZIDE
     Dosage: 25 MG
     Dates: start: 20110801

REACTIONS (5)
  - Renal failure [Unknown]
  - Death [Fatal]
  - Renal injury [Unknown]
  - Chronic kidney disease [Not Recovered/Not Resolved]
  - Rebound acid hypersecretion [Unknown]

NARRATIVE: CASE EVENT DATE: 2011
